FAERS Safety Report 9012682 (Version 3)
Quarter: 2014Q1

REPORT INFORMATION
  Report Type: Spontaneous
  Country: US (occurrence: US)
  Receive Date: 20130114
  Receipt Date: 20140124
  Transmission Date: 20141002
  Serious: Yes (Hospitalization, Other)
  Sender: FDA-Public Use
  Company Number: US-009507513-1301USA005237

PATIENT
  Sex: Female
  Weight: 52.15 kg

DRUGS (2)
  1. NUVARING [Suspect]
     Indication: CONTRACEPTION
     Dosage: UNK
     Route: 067
     Dates: start: 201008, end: 201010
  2. ALBUTEROL [Concomitant]
     Indication: ASTHMA
     Dosage: UNK
     Route: 055
     Dates: start: 1992

REACTIONS (10)
  - Pulmonary embolism [Unknown]
  - Coagulopathy [Unknown]
  - Maternal exposure before pregnancy [Unknown]
  - Vaginitis chlamydial [Unknown]
  - Dysmenorrhoea [Not Recovered/Not Resolved]
  - Headache [Not Recovered/Not Resolved]
  - Limb discomfort [Recovered/Resolved]
  - Upper respiratory tract infection [Unknown]
  - Tympanic membrane perforation [Unknown]
  - Decreased appetite [Unknown]
